FAERS Safety Report 9592492 (Version 1)
Quarter: 2013Q4

REPORT INFORMATION
  Report Type: Spontaneous
  Country: US (occurrence: None)
  Receive Date: 20131003
  Receipt Date: 20131003
  Transmission Date: 20140711
  Serious: Yes (Hospitalization)
  Sender: FDA-Public Use
  Company Number: None

PATIENT
  Age: 48 Year
  Sex: Female
  Weight: 69 kg

DRUGS (9)
  1. SITAGLIPTAN [Suspect]
     Indication: TYPE 2 DIABETES MELLITUS
     Route: 048
  2. ALLOPURINOL [Concomitant]
  3. ASPIRIN [Concomitant]
  4. FERROUS SULFATE [Concomitant]
  5. GLIPIZIDE [Concomitant]
  6. LISINOPRIL [Concomitant]
  7. METOPROLOL [Concomitant]
  8. PREDNISONE [Concomitant]
  9. SIMVASTATIN [Concomitant]

REACTIONS (7)
  - Abdominal pain [None]
  - Nausea [None]
  - Vomiting [None]
  - Tachycardia [None]
  - Pyrexia [None]
  - Leukocytosis [None]
  - Lipase increased [None]
